FAERS Safety Report 17982681 (Version 1)
Quarter: 2020Q3

REPORT INFORMATION
  Report Type: Spontaneous
  Country: US (occurrence: US)
  Receive Date: 20200703
  Receipt Date: 20200703
  Transmission Date: 20201103
  Serious: No
  Sender: FDA-Public Use
  Company Number: None

PATIENT
  Sex: Male

DRUGS (9)
  1. TREMFYA [Suspect]
     Active Substance: GUSELKUMAB
     Indication: PSORIASIS
     Dosage: ?          OTHER FREQUENCY:EVERY 8  WEEKS;?
     Route: 030
     Dates: start: 20181130
  2. MULTIPLE VITAMIN [Concomitant]
     Active Substance: VITAMINS
  3. RANITIDINE. [Concomitant]
     Active Substance: RANITIDINE
  4. CLOBETASOL [Concomitant]
     Active Substance: CLOBETASOL
  5. GLUCOSAMINE [Concomitant]
     Active Substance: GLUCOSAMINE
  6. LORAZEPAM. [Concomitant]
     Active Substance: LORAZEPAM
  7. ZYRYEC D ALRGY [Concomitant]
  8. NAPROXEN. [Concomitant]
     Active Substance: NAPROXEN
  9. RAPTIVA [Concomitant]
     Active Substance: EFALIZUMAB

REACTIONS (2)
  - Psoriasis [None]
  - Therapy interrupted [None]
